FAERS Safety Report 8206419-5 (Version None)
Quarter: 2012Q1

REPORT INFORMATION
  Report Type: 
  Country: None (occurrence: None)
  Receive Date: 20120313
  Receipt Date: 20120308
  Transmission Date: 20120608
  Serious: Yes (Hospitalization)
  Sender: FDA-Public Use
  Company Number: PHHY2011AU48065

PATIENT
  Sex: Female

DRUGS (7)
  1. ABILIFY [Concomitant]
     Dosage: 15 MG, QD
  2. EFFEXOR [Concomitant]
     Dosage: 525 MG, QD
  3. CLOZARIL [Suspect]
     Dosage: 75 MG DAILY
     Dates: start: 20090721
  4. DIAZEPAM [Concomitant]
     Dosage: 10 MG, TID
  5. ESTRADERM [Concomitant]
     Dosage: MX 50 PATCH  2 PATCHES EVERY 3 DAYS
  6. VALPROATE SODIUM [Concomitant]
  7. LEXAPRO [Concomitant]
     Dosage: 30 MG, QD

REACTIONS (8)
  - HALLUCINATION, AUDITORY [None]
  - PSYCHOTIC DISORDER [None]
  - SCHIZOPHRENIA [None]
  - PARANOIA [None]
  - DISTURBANCE IN SOCIAL BEHAVIOUR [None]
  - ILLUSION [None]
  - APATHY [None]
  - DYSPHONIA [None]
